FAERS Safety Report 8905423 (Version 1)
Quarter: 2012Q4

REPORT INFORMATION
  Report Type: 
  Country: US (occurrence: US)
  Receive Date: 20121113
  Receipt Date: 20121113
  Transmission Date: 20130627
  Serious: No
  Sender: FDA-Public Use
  Company Number: US-ASTRAZENECA-2012SE82354

PATIENT
  Age: 56 Year
  Sex: Male
  Weight: 97.5 kg

DRUGS (5)
  1. CRESTOR [Suspect]
     Indication: BLOOD CHOLESTEROL INCREASED
     Route: 048
     Dates: start: 2012
  2. NIASPIN [Concomitant]
     Indication: BLOOD CHOLESTEROL ABNORMAL
  3. ASPIRIN [Concomitant]
  4. FISH OIL [Concomitant]
  5. VITAMIN D [Concomitant]
     Indication: VITAMIN SUPPLEMENTATION

REACTIONS (1)
  - Epistaxis [Unknown]
